FAERS Safety Report 14681417 (Version 2)
Quarter: 2018Q3

REPORT INFORMATION
  Report Type: Spontaneous
  Country: PT (occurrence: PT)
  Receive Date: 20180326
  Receipt Date: 20180808
  Transmission Date: 20181010
  Serious: Yes (Hospitalization, Other)
  Sender: FDA-Public Use
  Company Number: PT-009507513-1803PRT007788

PATIENT
  Age: 21 Year
  Sex: Female

DRUGS (1)
  1. IMPLANON [Suspect]
     Active Substance: ETONOGESTREL
     Indication: CONTRACEPTION
     Dosage: 1 IMPLANT, UNK
     Route: 059
     Dates: start: 2011

REACTIONS (5)
  - Appendicitis [Recovered/Resolved]
  - Amenorrhoea [Recovered/Resolved]
  - Menstruation normal [Unknown]
  - Complication associated with device [Recovered/Resolved]
  - Vaginal haemorrhage [Recovered/Resolved]
